FAERS Safety Report 10761536 (Version 1)
Quarter: 2015Q1

REPORT INFORMATION
  Report Type: Spontaneous
  Country: US (occurrence: None)
  Receive Date: 20150203
  Receipt Date: 20150203
  Transmission Date: 20150721
  Serious: No
  Sender: FDA-Public Use
  Company Number: None

PATIENT
  Age: 54 Year
  Sex: Female
  Weight: 104.5 kg

DRUGS (1)
  1. LURASIDONE [Suspect]
     Active Substance: LURASIDONE
     Indication: BIPOLAR DISORDER
     Route: 048
     Dates: start: 20141208, end: 20141217

REACTIONS (3)
  - Headache [None]
  - Urge incontinence [None]
  - Pollakiuria [None]

NARRATIVE: CASE EVENT DATE: 20141222
